FAERS Safety Report 23033651 (Version 1)
Quarter: 2023Q4

REPORT INFORMATION
  Report Type: Spontaneous
  Country: US (occurrence: US)
  Receive Date: 20231005
  Receipt Date: 20231005
  Transmission Date: 20240110
  Serious: No
  Sender: FDA-Public Use
  Company Number: US-HORIZON THERAPEUTICS-HZN-2023-001051

PATIENT

DRUGS (3)
  1. KRYSTEXXA [Suspect]
     Active Substance: PEGLOTICASE
     Indication: Gout
     Dosage: 1ST INFUSION
     Route: 042
     Dates: start: 20230104
  2. KRYSTEXXA [Suspect]
     Active Substance: PEGLOTICASE
     Dosage: 3RD INFUSION
     Route: 042
     Dates: start: 20230201
  3. KRYSTEXXA [Suspect]
     Active Substance: PEGLOTICASE
     Dosage: UNK INFUSION
     Route: 042
     Dates: start: 20230301

REACTIONS (5)
  - Ear pruritus [Recovered/Resolved]
  - Hypoaesthesia oral [Unknown]
  - Lip swelling [Recovered/Resolved]
  - Gout [Unknown]
  - Blood uric acid increased [Not Recovered/Not Resolved]

NARRATIVE: CASE EVENT DATE: 20230101
